FAERS Safety Report 19239762 (Version 1)
Quarter: 2021Q2

REPORT INFORMATION
  Report Type: Spontaneous
  Country: US (occurrence: US)
  Receive Date: 20210511
  Receipt Date: 20210511
  Transmission Date: 20210717
  Serious: Yes (Other)
  Sender: FDA-Public Use
  Company Number: US-AMGEN-USASP2021069589

PATIENT
  Age: 41 Year
  Sex: Female

DRUGS (11)
  1. ARISTADA [Concomitant]
     Active Substance: ARIPIPRAZOLE LAUROXIL
  2. BENZTROPINE [BENZATROPINE] [Concomitant]
     Active Substance: BENZTROPINE
  3. CYANOCOBALAMIN. [Concomitant]
     Active Substance: CYANOCOBALAMIN
  4. HYDROCODONE BITARTRATE AND ACETAMINOPHEN [Concomitant]
     Active Substance: ACETAMINOPHEN\HYDROCODONE BITARTRATE
  5. PREDNISOLONE. [Concomitant]
     Active Substance: PREDNISOLONE
  6. PROPRANOLOL [Concomitant]
     Active Substance: PROPRANOLOL HYDROCHLORIDE
  7. OXCARBAZEPIN [Concomitant]
     Active Substance: OXCARBAZEPINE
  8. CLONAZEPAM. [Concomitant]
     Active Substance: CLONAZEPAM
  9. PREGABALIN. [Concomitant]
     Active Substance: PREGABALIN
  10. TRAZODONE [Concomitant]
     Active Substance: TRAZODONE HYDROCHLORIDE
  11. OTEZLA [Suspect]
     Active Substance: APREMILAST
     Indication: PSORIATIC ARTHROPATHY
     Dosage: 30 MILLIGRAM, BID
     Route: 048
     Dates: start: 20201223

REACTIONS (1)
  - Psoriatic arthropathy [Not Recovered/Not Resolved]

NARRATIVE: CASE EVENT DATE: 202104
